FAERS Safety Report 6294761-7 (Version None)
Quarter: 2009Q3

REPORT INFORMATION
  Report Type: 
  Country: None (occurrence: None)
  Receive Date: 20090730
  Receipt Date: 20090116
  Transmission Date: 20100115
  Serious: Yes (Other)
  Sender: FDA-Public Use
  Company Number: RCZYME686

PATIENT
  Age: 6 Year
  Sex: Male
  Weight: 21 kg

DRUGS (1)
  1. CEREZYME [Suspect]
     Indication: GAUCHER'S DISEASE
     Dosage: 600 U, QW, INTRAVENOUS
     Route: 042
     Dates: start: 20020117

REACTIONS (5)
  - ABDOMINAL PAIN [None]
  - ANXIETY [None]
  - RASH [None]
  - RESPIRATORY DISTRESS [None]
  - SWELLING FACE [None]
